FAERS Safety Report 6917750-5 (Version None)
Quarter: 2010Q3

REPORT INFORMATION
  Report Type: 
  Country: None (occurrence: None)
  Receive Date: 20100810
  Receipt Date: 20100729
  Transmission Date: 20110219
  Serious: Yes (Other)
  Sender: FDA-Public Use
  Company Number: FR-PFIZER INC-2010097312

PATIENT
  Age: 69 Year
  Sex: Male

DRUGS (2)
  1. NEURONTIN [Suspect]
  2. CIFLOX [Suspect]

REACTIONS (1)
  - TOXIC SKIN ERUPTION [None]
